FAERS Safety Report 5609764-2 (Version None)
Quarter: 2008Q1

REPORT INFORMATION
  Report Type: 
  Country: None (occurrence: None)
  Receive Date: 20080131
  Receipt Date: 20071128
  Transmission Date: 20080703
  Serious: No
  Sender: FDA-Public Use
  Company Number: US-BAYER-200713957BCC

PATIENT
  Age: 75 Year
  Sex: Female

DRUGS (2)
  1. ALEVE [Suspect]
     Indication: PAIN
     Route: 048
     Dates: start: 20071028
  2. ALEVE [Suspect]
     Route: 048
     Dates: start: 20071127

REACTIONS (1)
  - INSOMNIA [None]
